FAERS Safety Report 7433899-5 (Version None)
Quarter: 2011Q2

REPORT INFORMATION
  Report Type: 
  Country: None (occurrence: None)
  Receive Date: 20110425
  Receipt Date: 20110413
  Transmission Date: 20111010
  Serious: Yes (Hospitalization)
  Sender: FDA-Public Use
  Company Number: MX-ELI_LILLY_AND_COMPANY-MX201104004871

PATIENT
  Age: 50 Year
  Sex: Female
  Weight: 62 kg

DRUGS (3)
  1. FORTEO [Suspect]
     Indication: OSTEOPOROSIS
     Dosage: 20 UG, QD
     Route: 058
     Dates: start: 20110301, end: 20110301
  2. LUTORAL [Concomitant]
     Indication: MENOPAUSE
     Dosage: UNK, UNKNOWN
     Route: 065
  3. FORTEO [Suspect]
     Dosage: 20 UG, QD
     Route: 058
     Dates: start: 20110301, end: 20110301

REACTIONS (8)
  - RESPIRATORY RATE DECREASED [None]
  - PRURITUS [None]
  - FEELING ABNORMAL [None]
  - RASH [None]
  - HYPOAESTHESIA FACIAL [None]
  - BLOOD PRESSURE DECREASED [None]
  - HYPOAESTHESIA [None]
  - URTICARIA [None]
